FAERS Safety Report 5557233-0 (Version None)
Quarter: 2007Q4

REPORT INFORMATION
  Report Type: 
  Country: None (occurrence: None)
  Receive Date: 20071211
  Receipt Date: 20071126
  Transmission Date: 20080405
  Serious: Yes (Hospitalization)
  Sender: FDA-Public Use
  Company Number: DSA_30943_2007

PATIENT
  Age: 27 Year
  Sex: Male

DRUGS (2)
  1. ORFIDAL (ORFIDAL - LORAZEPAM) 1 MG [Suspect]
     Indication: INSOMNIA
     Dosage: 1 MG BID ORAL
     Route: 048
     Dates: start: 20070101, end: 20070916
  2. ZYPREXA [Suspect]
     Indication: SCHIZOPHRENIA
     Dosage: 30 MG BID ORAL
     Route: 048
     Dates: start: 20070101, end: 20070916

REACTIONS (3)
  - PSYCHOTIC DISORDER [None]
  - RENAL FAILURE ACUTE [None]
  - RHABDOMYOLYSIS [None]
